FAERS Safety Report 25717977 (Version 1)
Quarter: 2025Q3

REPORT INFORMATION
  Report Type: Spontaneous
  Country: EU (occurrence: EU)
  Receive Date: 20250822
  Receipt Date: 20250822
  Transmission Date: 20251021
  Serious: Yes (Hospitalization)
  Sender: ELI LILLY AND COMPANY
  Company Number: None

PATIENT
  Age: 50 Year
  Sex: Male

DRUGS (2)
  1. OLUMIANT [Suspect]
     Active Substance: BARICITINIB
     Indication: Atopy
     Dosage: 4 MG, DAILY
     Route: 048
     Dates: start: 20240312
  2. OLUMIANT [Suspect]
     Active Substance: BARICITINIB
     Indication: Psoriasis

REACTIONS (2)
  - Cellulitis [Recovered/Resolved]
  - Off label use [Unknown]

NARRATIVE: CASE EVENT DATE: 20250603
